FAERS Safety Report 6645106-1 (Version None)
Quarter: 2010Q1

REPORT INFORMATION
  Report Type: 
  Country: None (occurrence: None)
  Receive Date: 20100322
  Receipt Date: 20100315
  Transmission Date: 20100710
  Serious: No
  Sender: FDA-Public Use
  Company Number: US-ROXANE LABORATORIES, INC.-2009-RO-01104RO

PATIENT
  Sex: Female

DRUGS (4)
  1. LITHIUM CARBONATE [Suspect]
     Indication: BIPOLAR I DISORDER
     Dosage: 900 MG
  2. LITHIUM CARBONATE [Suspect]
     Dosage: 600 MG
  3. LITHIUM CARBONATE [Suspect]
     Dosage: 300 MG
  4. SEROQUEL [Concomitant]
     Indication: BIPOLAR I DISORDER
     Dosage: 800 MG

REACTIONS (2)
  - FATIGUE [None]
  - RENAL IMPAIRMENT [None]
